FAERS Safety Report 5261797-4 (Version None)
Quarter: 2007Q1

REPORT INFORMATION
  Report Type: 
  Country: None (occurrence: None)
  Receive Date: 20061208
  Receipt Date: 20060419
  Transmission Date: 20070707
  Serious: Yes (Other)
  Sender: FDA-Public Use
  Company Number: USA-2006-0024043

PATIENT
  Age: 53 Year
  Sex: Male
  Weight: 79.8 kg

DRUGS (5)
  1. OXYCONTIN [Suspect]
     Indication: PAIN
     Dosage: 80 MG, Q8H
     Dates: start: 20050516
  2. MSIR TABLETS 15 MG [Concomitant]
  3. XANAX [Concomitant]
  4. RESTORIL [Concomitant]
  5. VALIUM [Concomitant]

REACTIONS (2)
  - DRUG ABUSER [None]
  - INADEQUATE ANALGESIA [None]
